FAERS Safety Report 13819296 (Version 2)
Quarter: 2018Q1

REPORT INFORMATION
  Report Type: Report from Study
  Country: US (occurrence: US)
  Receive Date: 20170731
  Receipt Date: 20180201
  Transmission Date: 20180508
  Serious: No
  Sender: FDA-Public Use
  Company Number: US-EXELIXIS-CABO-17008248

PATIENT
  Sex: Female

DRUGS (10)
  1. COMPAZINE [Concomitant]
     Active Substance: PROCHLORPERAZINE MALEATE
  2. ESTRADIOL. [Concomitant]
     Active Substance: ESTRADIOL
  3. CABOMETYX [Suspect]
     Active Substance: CABOZANTINIB S-MALATE
     Indication: RENAL CANCER
     Dosage: 40 MG, QD
     Route: 048
     Dates: start: 20161222, end: 201701
  4. SYPRINE [Concomitant]
     Active Substance: TRIENTINE HYDROCHLORIDE
  5. ACETAMINOPHEN. [Concomitant]
     Active Substance: ACETAMINOPHEN
  6. LEVOTHYROXINE. [Concomitant]
     Active Substance: LEVOTHYROXINE
  7. CALCIUM [Concomitant]
     Active Substance: CALCIUM
  8. LISINOPRIL. [Concomitant]
     Active Substance: LISINOPRIL
  9. CLOTRIMAZOLE. [Concomitant]
     Active Substance: CLOTRIMAZOLE
  10. NORCO [Concomitant]
     Active Substance: ACETAMINOPHEN\HYDROCODONE BITARTRATE

REACTIONS (2)
  - Radiotherapy [Unknown]
  - Drug intolerance [Unknown]
